FAERS Safety Report 4312152-2 (Version None)
Quarter: 2004Q1

REPORT INFORMATION
  Report Type: 
  Country: None (occurrence: None)
  Receive Date: 20040303
  Receipt Date: 20040218
  Transmission Date: 20041129
  Serious: Yes (Hospitalization)
  Sender: FDA-Public Use
  Company Number: US-SHR-04-021771

PATIENT
  Sex: 0

DRUGS (2)
  1. CAMPATH [Suspect]
  2. ANTIEMETICS AND ANTINAUSEANTS [Concomitant]

REACTIONS (1)
  - PSYCHOTIC DISORDER [None]
